FAERS Safety Report 7561238-8 (Version None)
Quarter: 2011Q2

REPORT INFORMATION
  Report Type: 
  Country: None (occurrence: None)
  Receive Date: 20110621
  Receipt Date: 20101110
  Transmission Date: 20111010
  Serious: No
  Sender: FDA-Public Use
  Company Number: US-ASTRAZENECA-2010SE54046

PATIENT
  Age: 3 Year
  Sex: Male
  Weight: 22.7 kg

DRUGS (2)
  1. PULMICORT [Suspect]
     Indication: RESPIRATORY DISORDER
     Route: 055
     Dates: start: 20100120, end: 20100202
  2. PULMICORT [Suspect]
     Route: 055
     Dates: start: 20101101, end: 20101104

REACTIONS (5)
  - ANGER [None]
  - AGGRESSION [None]
  - COUGH [None]
  - IRRITABILITY [None]
  - NEGATIVISM [None]
